FAERS Safety Report 13707855 (Version 1)
Quarter: 2017Q2

REPORT INFORMATION
  Report Type: Spontaneous
  Country: SE (occurrence: SE)
  Receive Date: 20170630
  Receipt Date: 20170630
  Transmission Date: 20170830
  Serious: Yes (Other)
  Sender: FDA-Public Use
  Company Number: PHHY2017SE091074

PATIENT
  Age: 46 Year
  Sex: Female

DRUGS (1)
  1. MOMMOX [Suspect]
     Active Substance: MOMETASONE FUROATE
     Indication: RHINITIS ALLERGIC
     Dosage: 50 UG, DU
     Route: 065

REACTIONS (3)
  - Nasal ulcer [Unknown]
  - Nasal discomfort [Unknown]
  - Epistaxis [Unknown]
